FAERS Safety Report 7654588-8 (Version None)
Quarter: 2011Q3

REPORT INFORMATION
  Report Type: 
  Country: None (occurrence: None)
  Receive Date: 20110803
  Receipt Date: 20110728
  Transmission Date: 20111222
  Serious: Yes (Hospitalization, Disabling)
  Sender: FDA-Public Use
  Company Number: BR-GENENTECH-310700

PATIENT
  Sex: Female
  Weight: 85 kg

DRUGS (7)
  1. METHOTREXATE [Concomitant]
     Indication: PRODUCT USED FOR UNKNOWN INDICATION
     Dosage: 2.5 MG, UNK
  2. TANDRILAX [Concomitant]
     Indication: PAIN
     Dosage: UNK
  3. OXYCONTIN [Concomitant]
     Indication: PRODUCT USED FOR UNKNOWN INDICATION
     Dosage: 40 MG, UNK
  4. AMITRIPTYLINE HCL [Concomitant]
     Indication: PRODUCT USED FOR UNKNOWN INDICATION
     Dosage: 25 MG, UNK
  5. CITALOPRAM HYDROBROMIDE [Concomitant]
     Indication: PRODUCT USED FOR UNKNOWN INDICATION
     Dosage: 20 MG, UNK
  6. ARTRODAR [Concomitant]
     Indication: PRODUCT USED FOR UNKNOWN INDICATION
     Dosage: 50 MG, UNK
  7. RITUXIMAB [Suspect]
     Indication: RHEUMATOID ARTHRITIS
     Dosage: UNK
     Route: 050
     Dates: start: 20100601, end: 20100701

REACTIONS (9)
  - DECREASED APPETITE [None]
  - NAUSEA [None]
  - BREAST CANCER [None]
  - BREAST MASS [None]
  - GAIT DISTURBANCE [None]
  - DRUG INEFFECTIVE [None]
  - DIZZINESS [None]
  - PAIN [None]
  - BONE DISORDER [None]
